FAERS Safety Report 4654556-4 (Version None)
Quarter: 2005Q2

REPORT INFORMATION
  Report Type: 
  Country: None (occurrence: None)
  Receive Date: 20050503
  Receipt Date: 20050503
  Transmission Date: 20051028
  Serious: Yes (Hospitalization)
  Sender: FDA-Public Use
  Company Number: None

PATIENT
  Age: 24 Year
  Sex: Male
  Weight: 95.3 kg

DRUGS (6)
  1. GEODON [Suspect]
     Indication: MAJOR DEPRESSION
     Dosage: 40MG  BID WITH MEALS   ORAL
     Route: 048
     Dates: start: 20050324, end: 20050402
  2. ESCITALOPRAM [Concomitant]
  3. APAP TAB [Concomitant]
  4. LORAZEPAM [Concomitant]
  5. ALUMINUM HYDROXIDE AND MAGNESIUM TRISILICATE [Concomitant]
  6. MOM [Concomitant]

REACTIONS (1)
  - SYNCOPE [None]
